FAERS Safety Report 24794697 (Version 1)
Quarter: 2024Q4

REPORT INFORMATION
  Report Type: Spontaneous
  Country: US (occurrence: None)
  Receive Date: 20241230
  Receipt Date: 20241230
  Transmission Date: 20250115
  Serious: Yes (Other)
  Sender: Public
  Company Number: None

PATIENT
  Age: 79 Year
  Sex: Male
  Weight: 67.8 kg

DRUGS (2)
  1. CITALOPRAM [Suspect]
     Active Substance: CITALOPRAM
     Dosage: FREQUENCY : DAILY;?
     Route: 048
  2. ABIRATERONE [Suspect]
     Active Substance: ABIRATERONE\ABIRATERONE ACETATE

REACTIONS (4)
  - Dizziness [None]
  - Dizziness [None]
  - Palpitations [None]
  - Drug interaction [None]

NARRATIVE: CASE EVENT DATE: 20241230
